FAERS Safety Report 15374337 (Version 2)
Quarter: 2018Q4

REPORT INFORMATION
  Report Type: Other
  Country: DE (occurrence: DE)
  Receive Date: 20180912
  Receipt Date: 20181008
  Transmission Date: 20190204
  Serious: Yes (Life-Threatening, Other)
  Sender: FDA-Public Use
  Company Number: DE-MACLEODS PHARMACEUTICALS US LTD-MAC2018014649

PATIENT

DRUGS (10)
  1. IMATINIB. [Suspect]
     Active Substance: IMATINIB MESYLATE
     Indication: SYSTEMIC SCLERODERMA
     Dosage: 200 UNK
     Route: 048
  2. IMATINIB. [Suspect]
     Active Substance: IMATINIB MESYLATE
     Dosage: 400 UNK, IMATINIB WAS DISCONTINUED AND WAS LATER RE-STARTED AT 50% DOSE REDUCTION
     Route: 048
  3. DASATINIB. [Suspect]
     Active Substance: DASATINIB
     Dosage: 100 UNK, LATER RESTARTED AT FULL DOSE
     Route: 048
  4. CELECOXIB. [Suspect]
     Active Substance: CELECOXIB
     Dosage: UNK, LATER RESTARTED AT FULL DOSE
     Route: 065
  5. DASATINIB. [Suspect]
     Active Substance: DASATINIB
     Indication: EWING^S SARCOMA
     Dosage: , LATER RESTARTED AT FULL DOSE100 MILLIGRAM
     Route: 048
  6. IMATINIB. [Suspect]
     Active Substance: IMATINIB MESYLATE
     Dosage: UNK, 50 % DOSE REDUCTION
     Route: 065
  7. EPIRUBICIN [Suspect]
     Active Substance: EPIRUBICIN
     Dosage: UNK, LATER RESTARTED AT FULL DOSE AFTER THE END OF RADIOTHERAPY
     Route: 065
  8. CELECOXIB. [Suspect]
     Active Substance: CELECOXIB
     Indication: EWING^S SARCOMA
     Dosage: 200 MILLIGRAM, LATER RESTARTED AT FULL DOSE
     Route: 048
  9. EPIRUBICIN [Suspect]
     Active Substance: EPIRUBICIN
     Indication: EWING^S SARCOMA
     Dosage: 100 MILLIGRAM/SQ. METER, LATER RESTARTED AT FULL DOSE
     Route: 042
  10. IMATINIB. [Suspect]
     Active Substance: IMATINIB MESYLATE
     Indication: EWING^S SARCOMA
     Dosage: 400 MILLIGRAM
     Route: 048

REACTIONS (11)
  - Malignant neoplasm progression [Unknown]
  - Anaemia [Unknown]
  - Product use in unapproved indication [Unknown]
  - Thrombocytopenia [Unknown]
  - Depression [Unknown]
  - Vomiting [Unknown]
  - Nausea [Unknown]
  - Lymphopenia [Unknown]
  - Anxiety [Unknown]
  - Metastases to bone [Unknown]
  - Neutropenia [Unknown]
